FAERS Safety Report 5777463-2 (Version None)
Quarter: 2008Q2

REPORT INFORMATION
  Report Type: 
  Country: None (occurrence: None)
  Receive Date: 20080618
  Receipt Date: 20080612
  Transmission Date: 20081010
  Serious: Yes (Disabling)
  Sender: FDA-Public Use
  Company Number: JP-SANOFI-SYNTHELABO-F01200801018

PATIENT
  Sex: Male
  Weight: 53 kg

DRUGS (4)
  1. AVASTIN [Suspect]
     Route: 042
     Dates: start: 20071012, end: 20071123
  2. CALCIUM LEVOFOLINATE [Suspect]
     Dosage: UNK
     Route: 042
     Dates: start: 20070901, end: 20071124
  3. ELPLAT [Suspect]
     Indication: RECTAL CANCER
     Dosage: UNK
     Route: 042
     Dates: start: 20070901, end: 20071123
  4. FLUOROURACIL [Suspect]
     Dosage: UNK
     Route: 042
     Dates: start: 20070901, end: 20071124

REACTIONS (1)
  - ILEAL PERFORATION [None]
